FAERS Safety Report 8612545-9 (Version None)
Quarter: 2012Q3

REPORT INFORMATION
  Report Type: 
  Country: None (occurrence: None)
  Receive Date: 20120822
  Receipt Date: 20111007
  Transmission Date: 20120928
  Serious: No
  Sender: FDA-Public Use
  Company Number: US-ASTRAZENECA-2011SE60440

PATIENT
  Age: 67 Year
  Sex: Female
  Weight: 72.6 kg

DRUGS (1)
  1. SYMBICORT [Suspect]
     Dosage: 80/4.5MCG, QD
     Route: 055

REACTIONS (4)
  - BODY HEIGHT DECREASED [None]
  - ADVERSE EVENT [None]
  - INSOMNIA [None]
  - DRUG DOSE OMISSION [None]
